FAERS Safety Report 26119660 (Version 1)
Quarter: 2025Q4

REPORT INFORMATION
  Report Type: Spontaneous
  Country: GB (occurrence: None)
  Receive Date: 20251204
  Receipt Date: 20251204
  Transmission Date: 20260118
  Serious: Yes (Hospitalization, Other)
  Sender: AUROBINDO
  Company Number: GB-MHRA-MIDB-667600fb-2a54-45c2-9001-1a47c032f245

PATIENT
  Age: 85 Year
  Sex: Female

DRUGS (5)
  1. ALENDRONIC ACID [Suspect]
     Active Substance: ALENDRONIC ACID
     Indication: Product used for unknown indication
     Dosage: 70 MILLIGRAM, EVERY WEEK (ONE TO BE
     Route: 065
  2. PREDNISOLONE [Concomitant]
     Active Substance: PREDNISOLONE
     Indication: Product used for unknown indication
     Dosage: 5 MILLIGRAM, ONCE A DAY (ONE TO BE TAKEN EACH DAY)
     Route: 065
  3. ACETAMINOPHEN [Concomitant]
     Active Substance: ACETAMINOPHEN
     Indication: Product used for unknown indication
     Dosage: 1000 MILLIGRAM (TWO TO BE TAKEN EVERY 4-6 HOURS UP TO FOUR TIMES A DAY)
     Route: 065
  4. BISOPROLOL [Concomitant]
     Active Substance: BISOPROLOL
     Indication: Product used for unknown indication
     Dosage: 2.5 MILLIGRAM, ONCE A DAY (ONE TO BE TAKEN DAILY)
     Route: 065
  5. Fenbid 5% gel [Concomitant]
     Indication: Product used for unknown indication
     Dosage: 1 DOSAGE FORM, 3 TIMES A DAY (APPLY UP TO THREE TIMES A DAY WHEN REQUIRED)
     Route: 065

REACTIONS (3)
  - Atypical femur fracture [Unknown]
  - Colitis [Unknown]
  - Diarrhoea [Unknown]
